FAERS Safety Report 9107257 (Version 1)
Quarter: 2013Q1

REPORT INFORMATION
  Report Type: Spontaneous
  Country: GB (occurrence: GB)
  Receive Date: 20130221
  Receipt Date: 20130221
  Transmission Date: 20140127
  Serious: Yes (Disabling, Other)
  Sender: FDA-Public Use
  Company Number: GB-ALLERGAN-1302174US

PATIENT
  Age: 70 Year
  Sex: Female
  Weight: 70 kg

DRUGS (7)
  1. BOTOX? [Suspect]
     Indication: HYPERTONIC BLADDER
     Dosage: UNK, SINGLE
     Route: 030
     Dates: start: 20110615, end: 20110615
  2. AMITRIPTYLINE [Concomitant]
     Indication: PRODUCT USED FOR UNKNOWN INDICATION
  3. BISOPROLOL [Concomitant]
     Indication: PRODUCT USED FOR UNKNOWN INDICATION
  4. MELOXICAM [Concomitant]
     Indication: PRODUCT USED FOR UNKNOWN INDICATION
  5. SEROXAT [Concomitant]
     Indication: PRODUCT USED FOR UNKNOWN INDICATION
  6. RAMIPRIL [Concomitant]
     Indication: PRODUCT USED FOR UNKNOWN INDICATION
  7. TRAMADOL [Concomitant]
     Indication: PRODUCT USED FOR UNKNOWN INDICATION

REACTIONS (2)
  - Congestive cardiomyopathy [Not Recovered/Not Resolved]
  - Dyspnoea [Not Recovered/Not Resolved]
